FAERS Safety Report 7660273-9 (Version None)
Quarter: 2011Q3

REPORT INFORMATION
  Report Type: 
  Country: None (occurrence: None)
  Receive Date: 20110805
  Receipt Date: 20110725
  Transmission Date: 20111222
  Serious: Yes (Other)
  Sender: FDA-Public Use
  Company Number: PHFR2011GB03029

PATIENT
  Sex: Male
  Weight: 79.4 kg

DRUGS (6)
  1. PROPRANOLOL [Concomitant]
  2. ACE INHIBITOR NOS [Concomitant]
  3. CLOZAPINE [Suspect]
     Indication: SCHIZOPHRENIA
     Dosage: 450 MG/DAY
     Route: 048
     Dates: start: 20110216, end: 20110427
  4. MIRTAZAPINE [Concomitant]
     Indication: DEPRESSION
     Dosage: 30 MG/DAY
     Route: 048
     Dates: start: 20100706, end: 20110301
  5. TRIHEXYPHENIDYL [Concomitant]
     Indication: EXTRAPYRAMIDAL DISORDER
     Dosage: 10 MG/DAY
     Route: 048
     Dates: start: 20100714, end: 20110301
  6. LORAZEPAM [Concomitant]
     Indication: AGITATION
     Dosage: 1 MG/DAY
     Route: 048
     Dates: start: 20101026

REACTIONS (5)
  - CARDIAC MURMUR [None]
  - EJECTION FRACTION DECREASED [None]
  - TACHYCARDIA [None]
  - HEART VALVE INCOMPETENCE [None]
  - VENTRICULAR DYSFUNCTION [None]
